FAERS Safety Report 17509009 (Version 2)
Quarter: 2020Q1

REPORT INFORMATION
  Report Type: Spontaneous
  Country: JP (occurrence: JP)
  Receive Date: 20200306
  Receipt Date: 20200311
  Transmission Date: 20200409
  Serious: No
  Sender: FDA-Public Use
  Company Number: JP-PFIZER INC-2020098510

PATIENT
  Sex: Female

DRUGS (3)
  1. LYRICA OD 150MG [Suspect]
     Active Substance: PREGABALIN
     Indication: SCIATICA
     Dosage: 150 MG, 3X/DAY (AFTER EVERY MEAL)
     Route: 048
     Dates: start: 20200302
  2. LYRICA OD 150MG [Suspect]
     Active Substance: PREGABALIN
     Indication: BACK PAIN
  3. LYRICA OD 150MG [Suspect]
     Active Substance: PREGABALIN
     Indication: NEURALGIA

REACTIONS (2)
  - Thirst [Unknown]
  - Somnolence [Unknown]
